FAERS Safety Report 15338436 (Version 1)
Quarter: 2018Q3

REPORT INFORMATION
  Report Type: Spontaneous
  Country: AU (occurrence: AU)
  Receive Date: 20180831
  Receipt Date: 20180831
  Transmission Date: 20181010
  Serious: Yes (Other)
  Sender: FDA-Public Use
  Company Number: AU-009507513-2009-199082-NL

PATIENT
  Age: 16 Year
  Sex: Female
  Weight: 92 kg

DRUGS (5)
  1. IMPLANON [Suspect]
     Active Substance: ETONOGESTREL
     Indication: PRODUCT USED FOR UNKNOWN INDICATION
     Dosage: 1 IMPLANT, UNK
     Dates: start: 200201
  2. CLEXANE (ENOXAPARIN SODIUM) [Concomitant]
     Active Substance: ENOXAPARIN SODIUM
     Indication: COAGULOPATHY
     Dosage: UNK DF, UNK
     Dates: start: 2004, end: 2005
  3. MOBIC [Concomitant]
     Active Substance: MELOXICAM
     Indication: PAIN
     Dosage: UNK DF, UNK
  4. PANADEINE (ACETAMINOPHEN (+) CODEINE PHOSPHATE) [Concomitant]
     Indication: PAIN
     Dosage: UNK DF, UNK
  5. PANAMAX [Concomitant]
     Active Substance: ACETAMINOPHEN
     Indication: PAIN
     Dosage: UNK DF, UNK

REACTIONS (12)
  - Pregnancy with implant contraceptive [Unknown]
  - Venous thrombosis in pregnancy [Recovered/Resolved]
  - Musculoskeletal pain [Not Recovered/Not Resolved]
  - Pregnancy with implant contraceptive [Recovered/Resolved]
  - Pregnancy with implant contraceptive [Recovered/Resolved]
  - Premature labour [Unknown]
  - Coagulopathy [Unknown]
  - Abortion spontaneous [Unknown]
  - Premature separation of placenta [Unknown]
  - Pregnancy with implant contraceptive [Recovered/Resolved]
  - Pregnancy with implant contraceptive [Recovered/Resolved]
  - Back pain [Not Recovered/Not Resolved]

NARRATIVE: CASE EVENT DATE: 2002
